FAERS Safety Report 9109494 (Version 1)
Quarter: 2013Q1

REPORT INFORMATION
  Report Type: Report from Study
  Country: US (occurrence: US)
  Receive Date: 20130222
  Receipt Date: 20130222
  Transmission Date: 20140127
  Serious: Yes (Other)
  Sender: FDA-Public Use
  Company Number: US-SANOFI-AVENTIS-2013SA015421

PATIENT
  Sex: 0

DRUGS (2)
  1. DOCETAXEL [Suspect]
     Indication: BREAST CANCER
     Dosage: FOR 4 CYCLES
     Route: 065
  2. CAPECITABINE [Suspect]
     Indication: BREAST CANCER
     Dosage: ON DAYS 1-14 OF A 3-WEEK CYCLE, FOR 4 CYCLES
     Route: 048

REACTIONS (1)
  - Oesophageal obstruction [Unknown]
